FAERS Safety Report 8977365 (Version 1)
Quarter: 2012Q4

REPORT INFORMATION
  Report Type: 
  Country: US (occurrence: US)
  Receive Date: 20121220
  Receipt Date: 20121220
  Transmission Date: 20130627
  Serious: No
  Sender: FDA-Public Use
  Company Number: US-PFIZER INC-2012322316

PATIENT
  Sex: Female
  Weight: 58.96 kg

DRUGS (1)
  1. LIPITOR [Suspect]
     Indication: HIGH CHOLESTEROL
     Dosage: daily
     Route: 048

REACTIONS (2)
  - Blood creatine phosphokinase increased [Unknown]
  - Myalgia [Unknown]
